FAERS Safety Report 15491326 (Version 13)
Quarter: 2020Q1

REPORT INFORMATION
  Report Type: Spontaneous
  Country: CA (occurrence: CA)
  Receive Date: 20181012
  Receipt Date: 20200312
  Transmission Date: 20200409
  Serious: Yes (Other)
  Sender: FDA-Public Use
  Company Number: CA-CELLTRION INC.-2017CA004408

PATIENT

DRUGS (13)
  1. INFLECTRA [Suspect]
     Active Substance: INFLIXIMAB-DYYB
     Dosage: 600 MG, EVERY 6 WEEKS
     Route: 042
     Dates: start: 20190321
  2. LIPITOR [Concomitant]
     Active Substance: ATORVASTATIN CALCIUM
     Dosage: 10 MG, DAILY
     Dates: start: 2003
  3. INFLECTRA [Suspect]
     Active Substance: INFLIXIMAB-DYYB
     Dosage: 600 MG, EVERY 6 WEEKS
     Route: 042
     Dates: start: 20200227
  4. INFLECTRA [Suspect]
     Active Substance: INFLIXIMAB-DYYB
     Dosage: 600 MG, EVERY 6 WEEKS
     Route: 042
     Dates: start: 20190718, end: 20190718
  5. CELEBREX [Concomitant]
     Active Substance: CELECOXIB
     Dosage: 200 MG, (DAILY AS NEEDED) PRIOR TO ACTIVITIES
  6. HUMIRA [Concomitant]
     Active Substance: ADALIMUMAB
     Dosage: 40 MG, CYCLIC (TWICE MONTHLY)
     Dates: end: 20170204
  7. INFLECTRA [Suspect]
     Active Substance: INFLIXIMAB-DYYB
     Dosage: 600 MG, EVERY 6 WEEKS
     Route: 042
     Dates: start: 20171012
  8. INFLECTRA [Suspect]
     Active Substance: INFLIXIMAB-DYYB
     Dosage: 600 MG, EVERY 6 WEEKS
     Route: 042
     Dates: start: 20190125
  9. CANDESARTAN. [Concomitant]
     Active Substance: CANDESARTAN
     Dosage: 12.5 MG, DAILY
     Dates: start: 2004
  10. INFLECTRA [Suspect]
     Active Substance: INFLIXIMAB-DYYB
     Dosage: 600 MG, EVERY 6 WEEKS
     Route: 042
     Dates: start: 20191202
  11. INFLECTRA [Suspect]
     Active Substance: INFLIXIMAB-DYYB
     Indication: ANKYLOSING SPONDYLITIS
     Dosage: 600 MG, (EVERY 0, 2, 6 WEEKS, THEN EVERY 8 WEEKS FOR 12 MONTHS)
     Route: 042
     Dates: start: 20170320
  12. INFLECTRA [Suspect]
     Active Substance: INFLIXIMAB-DYYB
     Dosage: 600 MG, EVERY 6 WEEKS
     Route: 042
     Dates: start: 20200116
  13. INFLECTRA [Suspect]
     Active Substance: INFLIXIMAB-DYYB
     Indication: ARTHRITIS
     Dosage: 600 MG, EVERY 6 WEEKS
     Route: 042
     Dates: start: 20170815

REACTIONS (20)
  - Back pain [Not Recovered/Not Resolved]
  - Iritis [Recovered/Resolved]
  - Uveitis [Recovering/Resolving]
  - Blood iron decreased [Unknown]
  - Flushing [Not Recovered/Not Resolved]
  - Fall [Unknown]
  - Spinal pain [Recovering/Resolving]
  - Psoriasis [Recovered/Resolved]
  - Asthenia [Not Recovered/Not Resolved]
  - Ankle fracture [Recovering/Resolving]
  - Psoriatic arthropathy [Unknown]
  - Weight decreased [Recovered/Resolved]
  - Off label use [Unknown]
  - Intentional product use issue [Unknown]
  - Therapeutic response shortened [Not Recovered/Not Resolved]
  - Nervousness [Unknown]
  - Nausea [Recovered/Resolved]
  - Fatigue [Not Recovered/Not Resolved]
  - Blood pressure fluctuation [Unknown]
  - Drug ineffective [Unknown]

NARRATIVE: CASE EVENT DATE: 2017
